FAERS Safety Report 10445004 (Version 2)
Quarter: 2014Q3

REPORT INFORMATION
  Report Type: Spontaneous
  Country: US (occurrence: US)
  Receive Date: 20140910
  Receipt Date: 20140927
  Transmission Date: 20150326
  Serious: No
  Sender: FDA-Public Use
  Company Number: US-009507513-1409USA004618

PATIENT

DRUGS (2)
  1. METHYLPREDNISOLONE SODIUM SUCCINATE. [Suspect]
     Active Substance: METHYLPREDNISOLONE SODIUM SUCCINATE
     Indication: SPINAL CORD INJURY
     Dosage: 30 MG/KG, UNK, IV BOLUS
     Route: 042
  2. METHYLPREDNISOLONE SODIUM SUCCINATE. [Suspect]
     Active Substance: METHYLPREDNISOLONE SODIUM SUCCINATE
     Dosage: 5.4 MG/KG/H FOR 23 H, STARTED WITHIN 8 H OF INJURY
     Route: 042

REACTIONS (2)
  - Drug ineffective [Unknown]
  - Gastrointestinal haemorrhage [Unknown]
